FAERS Safety Report 4361257-9 (Version None)
Quarter: 2004Q2

REPORT INFORMATION
  Report Type: 
  Country: None (occurrence: None)
  Receive Date: 20040520
  Receipt Date: 20040507
  Transmission Date: 20050107
  Serious: Yes (Hospitalization)
  Sender: FDA-Public Use
  Company Number: PHNU2004DE01767

PATIENT
  Age: 37 Year
  Sex: Male

DRUGS (2)
  1. RITALIN [Suspect]
     Indication: ATTENTION DEFICIT/HYPERACTIVITY DISORDER
     Dosage: 25 MG/DAY
     Route: 048
     Dates: start: 20030201, end: 20030401
  2. RYTMONORM [Concomitant]
     Indication: ARRHYTHMIA
     Dosage: UNKNOWN
     Route: 048
     Dates: end: 20030101

REACTIONS (2)
  - CHEST PAIN [None]
  - TROPONIN I INCREASED [None]
